FAERS Safety Report 5270378-8 (Version None)
Quarter: 2007Q1

REPORT INFORMATION
  Report Type: 
  Country: None (occurrence: None)
  Receive Date: 20070320
  Receipt Date: 20070221
  Transmission Date: 20070707
  Serious: Yes (Hospitalization)
  Sender: FDA-Public Use
  Company Number: SE-BOEHRINGER INGELHEIM PHARMACEUTICALS, INC.-2007-SW-00081SW

PATIENT
  Sex: Female

DRUGS (2)
  1. SIFROL TAB. 0.18 MG [Suspect]
     Indication: RESTLESS LEGS SYNDROME
     Dates: start: 20070116, end: 20070201
  2. TOLVON [Concomitant]
     Indication: TENSION
     Dates: start: 20070116, end: 20070216

REACTIONS (6)
  - ABDOMINAL DISTENSION [None]
  - CONSTIPATION [None]
  - DYSPNOEA [None]
  - FLATULENCE [None]
  - GASTRITIS [None]
  - LACTOSE INTOLERANCE [None]
